FAERS Safety Report 4309525-0 (Version None)
Quarter: 2004Q1

REPORT INFORMATION
  Report Type: 
  Country: None (occurrence: None)
  Receive Date: 20040301
  Receipt Date: 20040218
  Transmission Date: 20041129
  Serious: Yes (Disabling)
  Sender: FDA-Public Use
  Company Number: K200400224

PATIENT
  Age: 68 Year
  Sex: Female

DRUGS (5)
  1. ALTACE [Suspect]
     Indication: CORONARY ARTERY DISEASE
     Dosage: QD, ORAL
     Route: 048
     Dates: start: 20020111
  2. ASPIRIN [Concomitant]
  3. DIAZEPAM [Concomitant]
  4. DILTIAZEM HYDROCHLORIDE [Concomitant]
  5. ATENOLOL [Concomitant]

REACTIONS (1)
  - DEAFNESS BILATERAL [None]
